FAERS Safety Report 8389451-0 (Version None)
Quarter: 2012Q2

REPORT INFORMATION
  Report Type: 
  Country: None (occurrence: None)
  Receive Date: 20120528
  Receipt Date: 20120514
  Transmission Date: 20120825
  Serious: Yes (Other)
  Sender: FDA-Public Use
  Company Number: JP-ELI_LILLY_AND_COMPANY-JP201204006200

PATIENT
  Sex: Female
  Weight: 55 kg

DRUGS (18)
  1. DICLOFENAC SODIUM [Concomitant]
     Indication: MUSCULOSKELETAL PAIN
     Dosage: UNK
     Route: 048
     Dates: start: 20031010, end: 20120303
  2. FOLIAMIN [Concomitant]
     Indication: MUSCULOSKELETAL PAIN
     Dosage: UNK
     Route: 048
     Dates: start: 20031010, end: 20120413
  3. PINDOLOL [Concomitant]
     Indication: HYPERTENSION
     Dosage: UNK
     Route: 048
     Dates: start: 20100603, end: 20120413
  4. ALENDRONATE SODIUM [Concomitant]
     Indication: OSTEOPOROSIS
     Dosage: 35 MG, WEEKLY (1/W)
     Route: 048
     Dates: start: 20100826, end: 20120413
  5. MECOBALAMIN [Concomitant]
     Indication: NEUROPATHY PERIPHERAL
     Dosage: UNK
     Route: 048
     Dates: start: 20031216, end: 20120413
  6. TEPRENONE [Concomitant]
     Indication: GASTRITIS PROPHYLAXIS
     Dosage: UNK
     Route: 048
     Dates: start: 20031010, end: 20120413
  7. SULFASALAZINE [Concomitant]
     Indication: MUSCULOSKELETAL PAIN
     Dosage: UNK
     Route: 048
     Dates: start: 20070405, end: 20120413
  8. IRBESARTAN [Concomitant]
     Indication: HYPERTENSION
     Dosage: 50 MG, QD
     Route: 048
     Dates: start: 20091210, end: 20120413
  9. TRICHLORMETHIAZIDE [Concomitant]
     Indication: HYPERTENSION
     Dosage: 1 MG, QD
     Route: 048
     Dates: start: 20060501, end: 20120413
  10. CINAL [Concomitant]
     Indication: PIGMENTATION DISORDER
     Dosage: UNK
     Route: 048
     Dates: start: 20050310, end: 20120413
  11. ETODOLAC [Concomitant]
     Indication: ABDOMINAL PAIN
     Dosage: UNK
     Route: 048
     Dates: start: 20120303, end: 20120413
  12. METHOTREXATE [Concomitant]
     Indication: MUSCULOSKELETAL PAIN
     Dosage: 5.0 MG, WEEKLY (1/W)
     Route: 048
     Dates: start: 20031010, end: 20120413
  13. PREDNISOLONE [Concomitant]
     Indication: MUSCULOSKELETAL PAIN
     Dosage: UNK
     Route: 048
     Dates: start: 20031003, end: 20070404
  14. FORTEO [Suspect]
     Indication: OSTEOPOROSIS
     Dosage: 20 UG, QD
     Route: 058
     Dates: start: 20120202, end: 20120228
  15. PREDNISOLONE [Concomitant]
     Dosage: UNK
     Route: 048
     Dates: start: 20070405
  16. ENBREL [Concomitant]
     Indication: MUSCULOSKELETAL PAIN
     Dosage: UNK
     Route: 058
     Dates: start: 20070405
  17. LANSOPRAZOLE [Concomitant]
     Indication: GASTROOESOPHAGEAL REFLUX DISEASE
     Dosage: 15 MG, QD
     Route: 048
     Dates: start: 20050310
  18. ISONIAZID [Concomitant]
     Indication: ANTIBIOTIC PROPHYLAXIS
     Dosage: UNK
     Route: 048
     Dates: start: 20070401, end: 20120413

REACTIONS (4)
  - DECREASED APPETITE [None]
  - RENAL IMPAIRMENT [None]
  - ABDOMINAL DISCOMFORT [None]
  - NAUSEA [None]
